FAERS Safety Report 7303997-5 (Version None)
Quarter: 2011Q1

REPORT INFORMATION
  Report Type: 
  Country: None (occurrence: None)
  Receive Date: 20110221
  Receipt Date: 20110210
  Transmission Date: 20110831
  Serious: Yes (Hospitalization, Other)
  Sender: FDA-Public Use
  Company Number: US-MERCK-1010USA00674

PATIENT
  Age: 28 Year
  Sex: Female
  Weight: 82 kg

DRUGS (6)
  1. VITAMINS (UNSPECIFIED) [Concomitant]
     Route: 065
     Dates: start: 19960101
  2. CALCIUM (UNSPECIFIED) [Concomitant]
     Route: 065
     Dates: start: 19960101
  3. VITAMIN D (UNSPECIFIED) [Concomitant]
     Route: 065
     Dates: start: 19960101
  4. FOSAMAX [Suspect]
     Route: 048
     Dates: start: 20010209, end: 20050209
  5. FOSAMAX [Suspect]
     Indication: OSTEOPOROSIS PROPHYLAXIS
     Route: 048
     Dates: start: 19970617, end: 20010209
  6. FOSAMAX PLUS D [Suspect]
     Indication: OSTEOPOROSIS
     Route: 065
     Dates: start: 20070801, end: 20080401

REACTIONS (38)
  - FEMUR FRACTURE [None]
  - BACK INJURY [None]
  - VISUAL IMPAIRMENT [None]
  - SYNOVIAL CYST [None]
  - JOINT SPRAIN [None]
  - BONE DENSITY DECREASED [None]
  - MUSCULAR WEAKNESS [None]
  - LIMB MALFORMATION [None]
  - ARTHRALGIA [None]
  - STRESS FRACTURE [None]
  - ORAL DISORDER [None]
  - ECCHYMOSIS [None]
  - JAW CYST [None]
  - GASTROOESOPHAGEAL REFLUX DISEASE [None]
  - WEIGHT INCREASED [None]
  - RETINAL DETACHMENT [None]
  - PLANTAR FASCIITIS [None]
  - SINUS TARSI SYNDROME [None]
  - MIGRAINE [None]
  - IMPAIRED HEALING [None]
  - TOOTH DISORDER [None]
  - TENDONITIS [None]
  - PERIPROSTHETIC OSTEOLYSIS [None]
  - OBESITY [None]
  - PERIARTHRITIS [None]
  - CYST [None]
  - ARTHROPATHY [None]
  - ABDOMINAL DISTENSION [None]
  - DIARRHOEA [None]
  - DIZZINESS [None]
  - TIBIA FRACTURE [None]
  - LOW TURNOVER OSTEOPATHY [None]
  - LIMB INJURY [None]
  - STRESS AT WORK [None]
  - ROSACEA [None]
  - RECTAL HAEMORRHAGE [None]
  - BONE METABOLISM DISORDER [None]
  - FALL [None]
